FAERS Safety Report 10163643 (Version 1)
Quarter: 2014Q2

REPORT INFORMATION
  Report Type: Spontaneous
  Country: US (occurrence: US)
  Receive Date: 20140509
  Receipt Date: 20140509
  Transmission Date: 20141212
  Serious: Yes (Hospitalization, Other)
  Sender: FDA-Public Use
  Company Number: US-TEVA-480574USA

PATIENT
  Age: 54 Year
  Sex: Male
  Weight: 95 kg

DRUGS (5)
  1. MINOCYCLINE [Suspect]
     Indication: DERMAL CYST
     Route: 065
  2. ATORVASTATIN [Interacting]
     Route: 065
  3. OMEPRAZOLE [Concomitant]
     Route: 065
  4. VITAMIN D [Concomitant]
     Route: 065
  5. ASPIRIN [Concomitant]
     Route: 065

REACTIONS (2)
  - Autoimmune hepatitis [Recovering/Resolving]
  - Drug interaction [Recovering/Resolving]
